FAERS Safety Report 6466178-3 (Version None)
Quarter: 2009Q4

REPORT INFORMATION
  Report Type: 
  Country: None (occurrence: None)
  Receive Date: 20091201
  Receipt Date: 20091201
  Transmission Date: 20100525
  Serious: Yes (Other)
  Sender: FDA-Public Use
  Company Number: None

PATIENT
  Age: 47 Year
  Sex: Female
  Weight: 62.5964 kg

DRUGS (2)
  1. AVAPRO [Suspect]
     Indication: DIABETIC NEPHROPATHY
     Dosage: ONE DAILY PO
     Route: 048
     Dates: start: 20090923, end: 20091007
  2. AVAPRO [Suspect]
     Indication: PROPHYLAXIS
     Dosage: ONE DAILY PO
     Route: 048
     Dates: start: 20090923, end: 20091007

REACTIONS (1)
  - BLOOD GLUCOSE INCREASED [None]
